FAERS Safety Report 18371464 (Version 4)
Quarter: 2021Q3

REPORT INFORMATION
  Report Type: Spontaneous
  Country: US (occurrence: US)
  Receive Date: 20201012
  Receipt Date: 20210824
  Transmission Date: 20211014
  Serious: Yes (Other)
  Sender: FDA-Public Use
  Company Number: US-PFIZER INC-2020389560

PATIENT
  Age: 61 Year
  Sex: Female

DRUGS (1)
  1. IBRANCE [Suspect]
     Active Substance: PALBOCICLIB
     Dosage: UNK

REACTIONS (9)
  - Hepatic lesion [Unknown]
  - Cataract [Recovered/Resolved]
  - Hepatic steatosis [Unknown]
  - Weight fluctuation [Unknown]
  - Thyroid disorder [Unknown]
  - Hepatitis [Unknown]
  - Weight decreased [Unknown]
  - Blood count abnormal [Unknown]
  - Hepatic enzyme increased [Unknown]
